FAERS Safety Report 8403147-8 (Version None)
Quarter: 2012Q2

REPORT INFORMATION
  Report Type: 
  Country: None (occurrence: None)
  Receive Date: 20120601
  Receipt Date: 20120522
  Transmission Date: 20120825
  Serious: Yes (Hospitalization, Other)
  Sender: FDA-Public Use
  Company Number: JP-ELI_LILLY_AND_COMPANY-JP201205001864

PATIENT
  Sex: Male
  Weight: 61.7 kg

DRUGS (2)
  1. PANVITAN [Concomitant]
     Indication: PROPHYLAXIS
     Dosage: 1 G, UNK
     Route: 048
     Dates: start: 20110101
  2. ALIMTA [Suspect]
     Indication: LUNG ADENOCARCINOMA STAGE IV
     Dosage: 860 MG, UNK
     Route: 042
     Dates: start: 20110126

REACTIONS (3)
  - PLATELET COUNT DECREASED [None]
  - C-REACTIVE PROTEIN INCREASED [None]
  - PYREXIA [None]
